FAERS Safety Report 17959546 (Version 1)
Quarter: 2020Q2

REPORT INFORMATION
  Report Type: Spontaneous
  Country: US (occurrence: US)
  Receive Date: 20200629
  Receipt Date: 20200629
  Transmission Date: 20200714
  Serious: Yes (Life-Threatening, Hospitalization)
  Sender: FDA-Public Use
  Company Number: US-SA-2020SA165542

PATIENT

DRUGS (1)
  1. FERRLECIT [Suspect]
     Active Substance: SODIUM FERRIC GLUCONATE COMPLEX
     Indication: ANAEMIA
     Dosage: 250 MG
     Route: 042
     Dates: start: 20200608

REACTIONS (11)
  - Uterine contractions during pregnancy [Unknown]
  - Discomfort [Unknown]
  - Abdominal discomfort [Unknown]
  - Chills [Unknown]
  - Blood pressure decreased [Unknown]
  - Nausea [Unknown]
  - Exposure during pregnancy [Unknown]
  - Feeling hot [Unknown]
  - Musculoskeletal discomfort [Unknown]
  - Pain [Unknown]
  - Vomiting [Unknown]

NARRATIVE: CASE EVENT DATE: 202006
